FAERS Safety Report 9769770 (Version 1)
Quarter: 2013Q4

REPORT INFORMATION
  Report Type: Spontaneous
  Country: US (occurrence: None)
  Receive Date: 20131217
  Receipt Date: 20131217
  Transmission Date: 20140711
  Serious: Yes (Other)
  Sender: FDA-Public Use
  Company Number: None

PATIENT
  Age: 69 Year
  Sex: Female

DRUGS (16)
  1. TECFIDERA [Suspect]
     Indication: MULTIPLE SCLEROSIS
     Route: 048
     Dates: start: 20131209, end: 20131216
  2. MECLIZINE [Concomitant]
  3. METOPROLOL [Concomitant]
  4. DIAZEPAM [Concomitant]
  5. VITAMIN D [Concomitant]
  6. AMANTADINE [Concomitant]
  7. NEXIUM [Concomitant]
  8. FISH OIL [Concomitant]
  9. VIT C [Concomitant]
  10. VIT E [Concomitant]
  11. VIT A [Concomitant]
  12. C0 Q10 [Concomitant]
  13. VIT B COMPLEX [Concomitant]
  14. LUTEIN [Concomitant]
  15. CRANBERRY FRUIT [Concomitant]
  16. GINGKO BILOBA [Concomitant]

REACTIONS (3)
  - Flushing [None]
  - Paraesthesia [None]
  - Eye irritation [None]
